FAERS Safety Report 16068039 (Version 5)
Quarter: 2019Q3

REPORT INFORMATION
  Report Type: Spontaneous
  Country: US (occurrence: US)
  Receive Date: 20190313
  Receipt Date: 20190913
  Transmission Date: 20191004
  Serious: Yes (Other)
  Sender: FDA-Public Use
  Company Number: US-ASTRAZENECA-2018SF34167

PATIENT
  Age: 18319 Day
  Sex: Female
  Weight: 71.7 kg

DRUGS (27)
  1. NEXIUM [Suspect]
     Active Substance: ESOMEPRAZOLE MAGNESIUM
     Indication: GASTROOESOPHAGEAL REFLUX DISEASE
     Route: 048
     Dates: start: 201001, end: 201712
  2. TRAMADOL HYDROCHLORIDE. [Concomitant]
     Active Substance: TRAMADOL HYDROCHLORIDE
  3. ALBUTEROL INHALATION [Concomitant]
     Active Substance: ALBUTEROL
     Dosage: 2.5 MG NEBULIZED Q6HR
     Route: 065
  4. ACETAMINOPHEN-HYDROCODONE [Concomitant]
     Active Substance: ACETAMINOPHEN\HYDROCODONE
     Indication: PAIN
     Dosage: (NORCO 325 MG-10 MG ORAL TABLET
     Route: 065
  5. AI HYDROXIDE/MG HYDROXIDE/SIMETHICONE [Concomitant]
     Indication: DYSPEPSIA
     Dosage: 1 MG IN-LINE ASDIRECTED PRN OTHER
     Route: 065
  6. DOCUSATE SENNA [Concomitant]
     Indication: CONSTIPATION
     Dosage: 2 TAB(S) PO (ORAL) BID PRN
     Route: 065
  7. GABAPENTIN. [Concomitant]
     Active Substance: GABAPENTIN
  8. DEXILANT [Suspect]
     Active Substance: DEXLANSOPRAZOLE
     Indication: GASTROOESOPHAGEAL REFLUX DISEASE
     Route: 048
  9. PREVACID [Suspect]
     Active Substance: LANSOPRAZOLE
     Indication: GASTROOESOPHAGEAL REFLUX DISEASE
     Route: 065
     Dates: start: 199507, end: 201712
  10. AMLODIPINE BESYLATE. [Concomitant]
     Active Substance: AMLODIPINE BESYLATE
  11. CLONAZEPAM. [Concomitant]
     Active Substance: CLONAZEPAM
  12. IPRATROPIUM [Concomitant]
     Active Substance: IPRATROPIUM
     Dosage: 0.5 MG NEBULIZED Q6HR, FORM: SOLN
     Route: 065
  13. SODIUM CHLORIDE. [Concomitant]
     Active Substance: SODIUM CHLORIDE
     Dosage: 0.9%1,000 ML IV INFUSION 75 MUHR
     Route: 065
  14. DICYCLOMINE HYDROCHLORIDE. [Concomitant]
     Active Substance: DICYCLOMINE HYDROCHLORIDE
     Dosage: 200 MG PO (ORAL) Q8H PRN
     Route: 065
  15. ALTEPLASE. [Concomitant]
     Active Substance: ALTEPLASE
     Indication: ANTICOAGULANT THERAPY
     Dosage: 1 MG IN-LINE ASDIRECTED PRN OTHER
     Route: 065
  16. NEXIUM [Suspect]
     Active Substance: ESOMEPRAZOLE MAGNESIUM
     Indication: GASTROOESOPHAGEAL REFLUX DISEASE
     Route: 048
  17. PRILOSEC [Suspect]
     Active Substance: OMEPRAZOLE MAGNESIUM
     Indication: GASTROOESOPHAGEAL REFLUX DISEASE
     Route: 048
     Dates: start: 200002, end: 201712
  18. DEXILANT [Suspect]
     Active Substance: DEXLANSOPRAZOLE
     Indication: GASTROOESOPHAGEAL REFLUX DISEASE
     Route: 065
     Dates: start: 201705
  19. METHYLPREDNISOLONE. [Concomitant]
     Active Substance: METHYLPREDNISOLONE
  20. DEXILANT [Suspect]
     Active Substance: DEXLANSOPRAZOLE
     Indication: GASTROOESOPHAGEAL REFLUX DISEASE
     Route: 065
     Dates: start: 20170501, end: 20180209
  21. PROTONIX [Suspect]
     Active Substance: PANTOPRAZOLE SODIUM
     Indication: GASTROOESOPHAGEAL REFLUX DISEASE
     Route: 065
     Dates: start: 200004, end: 201712
  22. VITAMIN D [Concomitant]
     Active Substance: VITAMIN D NOS
  23. PREDNISONE. [Concomitant]
     Active Substance: PREDNISONE
  24. CEFTRIAXONE. [Concomitant]
     Active Substance: CEFTRIAXONE
     Dosage: 1,000 MG IV PIGGYBACK Q24HR
     Route: 065
  25. PHENAZOPYRIDINE. [Concomitant]
     Active Substance: PHENAZOPYRIDINE
     Dosage: 200 MG PO (ORAL) Q8H PRN
     Route: 065
  26. ZONISAMIDE. [Concomitant]
     Active Substance: ZONISAMIDE
     Dosage: 200 MG PO (ORAL) Q8H PRN
     Route: 065
  27. BISACODYL. [Concomitant]
     Active Substance: BISACODYL
     Indication: CONSTIPATION
     Dosage: 10 MG PO (ORAL) QDAY PRN
     Route: 065

REACTIONS (4)
  - Acute kidney injury [Not Recovered/Not Resolved]
  - Chronic kidney disease [Not Recovered/Not Resolved]
  - Renal injury [Unknown]
  - Renal failure [Unknown]

NARRATIVE: CASE EVENT DATE: 20141104
